FAERS Safety Report 5167107-5 (Version None)
Quarter: 2006Q4

REPORT INFORMATION
  Report Type: 
  Country: None (occurrence: None)
  Receive Date: 20061207
  Receipt Date: 20061013
  Transmission Date: 20070319
  Serious: Yes (Hospitalization)
  Sender: FDA-Public Use
  Company Number: FR-GLAXOSMITHKLINE-B0442281A

PATIENT
  Age: 64 Year
  Sex: Male
  Weight: 115 kg

DRUGS (4)
  1. AVANDIA [Suspect]
     Dosage: 4MG PER DAY
     Route: 048
     Dates: start: 20060501, end: 20061010
  2. APROVEL [Concomitant]
     Dosage: 300MG PER DAY
     Route: 048
     Dates: start: 20060918
  3. ALLOPURINOL [Concomitant]
     Dosage: 200MG PER DAY
     Route: 048
     Dates: start: 19900101
  4. ASPIRIN [Concomitant]
     Dosage: 160MG PER DAY
     Route: 048
     Dates: start: 20060925

REACTIONS (2)
  - PAPILLOEDEMA [None]
  - VISUAL ACUITY REDUCED [None]
